FAERS Safety Report 9288498 (Version 2)
Quarter: 2013Q3

REPORT INFORMATION
  Report Type: Spontaneous
  Country: US (occurrence: US)
  Receive Date: 20130514
  Receipt Date: 20130808
  Transmission Date: 20140515
  Serious: No
  Sender: FDA-Public Use
  Company Number: US-TEVA-404797USA

PATIENT
  Sex: Female

DRUGS (10)
  1. DIAZEPAM [Suspect]
  2. COPAXONE [Suspect]
     Indication: MULTIPLE SCLEROSIS
     Dates: start: 20010101
  3. RAMIPRIL [Concomitant]
  4. METFORMIN [Concomitant]
  5. ELAVIL [Concomitant]
  6. PROTONIX [Concomitant]
  7. LORTAB [Concomitant]
  8. BACLOFEN [Concomitant]
  9. FLEXERIL [Concomitant]
  10. TRAMADOL [Concomitant]

REACTIONS (1)
  - Psychogenic seizure [Recovering/Resolving]
